FAERS Safety Report 8332543-2 (Version None)
Quarter: 2012Q2

REPORT INFORMATION
  Report Type: 
  Country: None (occurrence: None)
  Receive Date: 20120503
  Receipt Date: 20120426
  Transmission Date: 20120825
  Serious: No
  Sender: FDA-Public Use
  Company Number: US-PFIZER INC-2012063613

PATIENT
  Sex: Female
  Weight: 70 kg

DRUGS (3)
  1. ATIVAN [Concomitant]
     Dosage: 1 MG, 4X/DAY
  2. PRISTIQ [Suspect]
     Indication: ANXIETY DISORDER
     Dosage: 50 MG, 1X/DAY
     Route: 048
     Dates: start: 20110101, end: 20110101
  3. PRISTIQ [Suspect]
     Dosage: 50 MG, 1X/DAY
     Route: 048
     Dates: start: 20110101

REACTIONS (6)
  - MALAISE [None]
  - HEPATIC ENZYME INCREASED [None]
  - HAEMATOCRIT DECREASED [None]
  - TREMOR [None]
  - ANXIETY [None]
  - TACHYCARDIA [None]
